FAERS Safety Report 8563541-1 (Version None)
Quarter: 2012Q3

REPORT INFORMATION
  Report Type: 
  Country: None (occurrence: None)
  Receive Date: 20120803
  Receipt Date: 20120731
  Transmission Date: 20120928
  Serious: Yes (Death, Hospitalization, Other)
  Sender: FDA-Public Use
  Company Number: AU-AMGEN-AUSSP2012046963

PATIENT
  Age: 64 Year
  Sex: Male

DRUGS (4)
  1. NEULASTA [Suspect]
     Indication: CHEMOTHERAPY
  2. CISPLATIN [Concomitant]
     Indication: TESTICULAR CANCER METASTATIC
  3. IMMUNOSUPPRESSANTS [Concomitant]
  4. ETOPOSIDE [Concomitant]
     Indication: TESTICULAR CANCER METASTATIC

REACTIONS (3)
  - NECROTISING COLITIS [None]
  - FEBRILE NEUTROPENIA [None]
  - NEUTROPENIC SEPSIS [None]
